FAERS Safety Report 10791449 (Version 1)
Quarter: 2015Q1

REPORT INFORMATION
  Report Type: Spontaneous
  Country: US (occurrence: US)
  Receive Date: 20150213
  Receipt Date: 20150213
  Transmission Date: 20150721
  Serious: Yes (Hospitalization, Other)
  Sender: FDA-Public Use
  Company Number: US-AMGEN-USASP2015012698

PATIENT
  Age: 69 Year
  Sex: Female

DRUGS (1)
  1. ENBREL [Suspect]
     Active Substance: ETANERCEPT
     Indication: RHEUMATOID ARTHRITIS
     Dosage: 50 MG, QWK
     Route: 065
     Dates: start: 20020101

REACTIONS (8)
  - Therapeutic response decreased [Not Recovered/Not Resolved]
  - Pain in extremity [Not Recovered/Not Resolved]
  - Deafness unilateral [Not Recovered/Not Resolved]
  - Musculoskeletal pain [Not Recovered/Not Resolved]
  - Back disorder [Recovered/Resolved]
  - Chronic obstructive pulmonary disease [Not Recovered/Not Resolved]
  - Arthralgia [Not Recovered/Not Resolved]
  - Mobility decreased [Not Recovered/Not Resolved]
